FAERS Safety Report 8877685 (Version 2)
Quarter: 2012Q4

REPORT INFORMATION
  Report Type: 
  Country: BR (occurrence: BR)
  Receive Date: 20121024
  Receipt Date: 20121226
  Transmission Date: 20130627
  Serious: Yes (Other)
  Sender: FDA-Public Use
  Company Number: PHHY2012BR058322

PATIENT
  Age: 65 Year
  Sex: Female

DRUGS (2)
  1. DIOVAN AMLO FIX [Suspect]
     Indication: HYPERTENSION
     Dosage: 1 DF (320 mg vals and 5 mg amlo), a day
     Dates: end: 20121220
  2. GALVUS [Suspect]
     Indication: DIABETES MELLITUS
     Dosage: 50 mg daily
     Route: 048

REACTIONS (25)
  - Diabetes mellitus [Unknown]
  - Dysphonia [Not Recovered/Not Resolved]
  - Speech disorder [Recovering/Resolving]
  - Eye pruritus [Recovering/Resolving]
  - Eye swelling [Recovering/Resolving]
  - Swollen tongue [Recovering/Resolving]
  - Hypotension [Recovered/Resolved]
  - Swelling face [Recovering/Resolving]
  - Fatigue [Recovering/Resolving]
  - Myalgia [Recovering/Resolving]
  - Muscle spasms [Not Recovered/Not Resolved]
  - Hyperhidrosis [Not Recovered/Not Resolved]
  - Oropharyngeal pain [Recovering/Resolving]
  - Oedema peripheral [Recovering/Resolving]
  - Blood pressure systolic increased [Recovered/Resolved]
  - Throat irritation [Unknown]
  - Oropharyngeal pain [Recovered/Resolved]
  - Drug intolerance [Unknown]
  - Palpitations [Unknown]
  - Headache [Recovering/Resolving]
  - Dizziness [Unknown]
  - Nausea [Unknown]
  - Cough [Recovering/Resolving]
  - Malaise [Unknown]
  - Hypersensitivity [Recovered/Resolved]
